FAERS Safety Report 22082566 (Version 2)
Quarter: 2023Q2

REPORT INFORMATION
  Report Type: Spontaneous
  Country: US (occurrence: US)
  Receive Date: 20230310
  Receipt Date: 20230414
  Transmission Date: 20230722
  Serious: Yes (Other)
  Sender: FDA-Public Use
  Company Number: US-PFIZER INC-PV202200081465

PATIENT
  Age: 81 Year
  Sex: Male
  Weight: 74.376 kg

DRUGS (11)
  1. COZAAR [Suspect]
     Active Substance: LOSARTAN POTASSIUM
     Indication: Cardiac failure
     Dosage: 1 TAB BY MOUTH ONE TIME DAILY
     Route: 048
     Dates: start: 201903
  2. COUMADIN [Suspect]
     Active Substance: WARFARIN SODIUM
     Dosage: 1 TAB BY MOUTH ONE TIME DAILY AT BED TIME
     Route: 048
  3. MINIPRESS [Suspect]
     Active Substance: PRAZOSIN HYDROCHLORIDE
     Dosage: TAKE ONE CAPSULE BY MOUTH TWICE A DAY
     Route: 048
     Dates: start: 20220215
  4. LASIX [Suspect]
     Active Substance: FUROSEMIDE
     Dosage: TAKE 1 TABLET BY MOUTH 2 TIMES DAILY
     Route: 048
     Dates: start: 20220711, end: 20221108
  5. DAPSONE [Suspect]
     Active Substance: DAPSONE
     Dosage: TAKE 1.5 TABLETS BY MOUTH DAILY
     Route: 048
     Dates: start: 20220608
  6. MINERALS\VITAMINS [Suspect]
     Active Substance: MINERALS\VITAMINS
     Dosage: 1 CAP BY MOUTH 2 TIMES DAILY
     Route: 048
  7. FERROUS SULFATE [Suspect]
     Active Substance: FERROUS SULFATE
     Dosage: 1 TABLET BY MOUTH 2 TIMES DAILY
     Route: 048
     Dates: start: 20160409
  8. CLARITIN [Suspect]
     Active Substance: LORATADINE
     Dosage: TAKE 10 MG BY MOUTH ONE TIME DAILY
     Route: 048
  9. TYLENOL [Interacting]
     Active Substance: ACETAMINOPHEN
     Dosage: TAKE 500 MG BY MOUTH 2 TIMES DAILY
     Route: 048
  10. VITAMIN C [Suspect]
     Active Substance: ASCORBIC ACID
     Dosage: TAKE 500 MG BY MOUTH ONE TIME DAILY
     Route: 048
  11. VYNDAMAX [Suspect]
     Active Substance: TAFAMIDIS
     Indication: Cardiac amyloidosis
     Dosage: 1 CAPSULE BY MOUTH ONE TIME DAILY
     Route: 048
     Dates: start: 20220809

REACTIONS (3)
  - Cardiac amyloidosis [Not Recovered/Not Resolved]
  - Flatulence [Not Recovered/Not Resolved]
  - Diarrhoea [Not Recovered/Not Resolved]

NARRATIVE: CASE EVENT DATE: 20220624
